FAERS Safety Report 4520929-3 (Version None)
Quarter: 2004Q4

REPORT INFORMATION
  Report Type: 
  Country: None (occurrence: None)
  Receive Date: 20041203
  Receipt Date: 20041130
  Transmission Date: 20050328
  Serious: Yes (Other)
  Sender: FDA-Public Use
  Company Number: DEWYE24393NOV04

PATIENT
  Sex: Female

DRUGS (1)
  1. TREVILOR RETARD (VENLAFAXINE HYDROCHLORIDE, CAPSULE, EXTENDED RELEASE, [Suspect]
     Dosage: SEE IMAGE
     Route: 048

REACTIONS (4)
  - CONVULSION [None]
  - DELIRIUM [None]
  - DRUG LEVEL INCREASED [None]
  - DRUG WITHDRAWAL SYNDROME [None]
